FAERS Safety Report 11176587 (Version 1)
Quarter: 2015Q2

REPORT INFORMATION
  Report Type: Spontaneous
  Country: US (occurrence: None)
  Receive Date: 20150609
  Receipt Date: 20150609
  Transmission Date: 20150821
  Serious: No
  Sender: FDA-Public Use
  Company Number: None

PATIENT
  Age: 64 Year
  Sex: Female

DRUGS (6)
  1. SYMBICORT [Concomitant]
     Active Substance: BUDESONIDE\FORMOTEROL FUMARATE DIHYDRATE
  2. DEPO-MEDROL [Suspect]
     Active Substance: METHYLPREDNISOLONE ACETATE
     Indication: OSTEOARTHRITIS
     Dates: start: 20150528
  3. LIDOCAINE. [Suspect]
     Active Substance: LIDOCAINE
     Indication: OSTEOARTHRITIS
     Dates: start: 20150528
  4. MARCAINE [Suspect]
     Active Substance: BUPIVACAINE HYDROCHLORIDE
     Indication: OSTEOARTHRITIS
     Dates: start: 20150528
  5. IRBESARTAN. [Concomitant]
     Active Substance: IRBESARTAN
  6. IBUPROFEN. [Concomitant]
     Active Substance: IBUPROFEN

REACTIONS (2)
  - Staphylococcus test negative [None]
  - Arthritis bacterial [None]

NARRATIVE: CASE EVENT DATE: 20150527
